FAERS Safety Report 8300726-3 (Version None)
Quarter: 2012Q2

REPORT INFORMATION
  Report Type: 
  Country: None (occurrence: None)
  Receive Date: 20120420
  Receipt Date: 20120416
  Transmission Date: 20120825
  Serious: No
  Sender: FDA-Public Use
  Company Number: PHEH2012US007132

PATIENT
  Sex: Female

DRUGS (8)
  1. LISINOPRIL [Concomitant]
  2. CYMBALTA [Concomitant]
  3. LIDODERM [Concomitant]
  4. LUNESTA [Concomitant]
  5. NYSTATIN [Concomitant]
  6. TASIGNA [Suspect]
     Indication: CHRONIC MYELOID LEUKAEMIA
     Dosage: 300 MG, BID
     Route: 048
     Dates: start: 20120229
  7. SOTALOL HCL [Concomitant]
  8. SIMVASTATIN [Concomitant]

REACTIONS (2)
  - RASH [None]
  - PRURITUS [None]
